FAERS Safety Report 9492417 (Version 1)
Quarter: 2013Q3

REPORT INFORMATION
  Report Type: Spontaneous
  Country: US (occurrence: US)
  Receive Date: 20130830
  Receipt Date: 20130830
  Transmission Date: 20140515
  Serious: Yes (Death, Life-Threatening)
  Sender: FDA-Public Use
  Company Number: US-BRISTOL-MYERS SQUIBB COMPANY-19224310

PATIENT
  Age: 4 Decade
  Sex: Female

DRUGS (1)
  1. YERVOY [Suspect]
     Dates: start: 20130813

REACTIONS (4)
  - Death [Fatal]
  - Pain [Unknown]
  - Nausea [Unknown]
  - Vomiting [Unknown]
